FAERS Safety Report 8620915-8 (Version None)
Quarter: 2012Q3

REPORT INFORMATION
  Report Type: 
  Country: None (occurrence: None)
  Receive Date: 20120824
  Receipt Date: 20120815
  Transmission Date: 20120928
  Serious: Yes (Hospitalization, Disabling, Other)
  Sender: FDA-Public Use
  Company Number: US-009507513-1207USA00052

PATIENT

DRUGS (4)
  1. FOSAMAX [Suspect]
     Indication: OSTEOPOROSIS
     Dosage: UNK
     Route: 048
     Dates: start: 19950101
  2. BONIVA [Concomitant]
     Indication: OSTEOPOROSIS
  3. CALCIUM (UNSPECIFIED) (+) VITAMIN D (UNSPECIFIED) [Concomitant]
     Dosage: 1200 MG, QD
     Dates: start: 19880101
  4. MIACALCIN [Concomitant]
     Indication: OSTEOPOROSIS

REACTIONS (14)
  - GASTROOESOPHAGEAL REFLUX DISEASE [None]
  - HYSTERECTOMY [None]
  - PERIODONTAL DISEASE [None]
  - ANGIOPATHY [None]
  - STRESS FRACTURE [None]
  - TOOTH EXTRACTION [None]
  - FEMUR FRACTURE [None]
  - SURGERY [None]
  - OSTEOPOROSIS [None]
  - BONE DENSITY DECREASED [None]
  - TOOTH DISORDER [None]
  - HORMONE THERAPY [None]
  - BLOOD CHOLESTEROL INCREASED [None]
  - RHEUMATOID ARTHRITIS [None]
